FAERS Safety Report 24200241 (Version 1)
Quarter: 2024Q3

REPORT INFORMATION
  Report Type: Spontaneous
  Country: AU (occurrence: AU)
  Receive Date: 20240812
  Receipt Date: 20240812
  Transmission Date: 20241017
  Serious: Yes (Other)
  Sender: BAYER
  Company Number: AU-BAYER-2024A114354

PATIENT
  Sex: Male

DRUGS (1)
  1. VITRAKVI [Suspect]
     Active Substance: LAROTRECTINIB
     Indication: Sarcoma
     Dosage: UNK

REACTIONS (1)
  - Malignant neoplasm progression [Unknown]
